FAERS Safety Report 25052097 (Version 1)
Quarter: 2025Q1

REPORT INFORMATION
  Report Type: Spontaneous
  Country: US (occurrence: None)
  Receive Date: 20250306
  Receipt Date: 20250306
  Transmission Date: 20250409
  Serious: Yes (Hospitalization, Disabling)
  Sender: FDA-CTU
  Company Number: None

PATIENT
  Age: 35 Year
  Sex: Female
  Weight: 70.31 kg

DRUGS (4)
  1. DOTAREM [Suspect]
     Active Substance: GADOTERATE MEGLUMINE
     Indication: Magnetic resonance imaging
     Route: 042
     Dates: start: 20231022, end: 20240107
  2. IBUPROFEN [Concomitant]
     Active Substance: IBUPROFEN
  3. UNSPECIFIED INGREDIENT [Concomitant]
     Active Substance: UNSPECIFIED INGREDIENT
  4. NALTREXONE [Concomitant]
     Active Substance: NALTREXONE

REACTIONS (19)
  - Headache [None]
  - Muscle twitching [None]
  - Muscle spasms [None]
  - Vitreous floaters [None]
  - Vitreous detachment [None]
  - Angiopathy [None]
  - Raynaud^s phenomenon [None]
  - Tinnitus [None]
  - Pain in extremity [None]
  - Pain in extremity [None]
  - Pelvic pain [None]
  - Back pain [None]
  - Memory impairment [None]
  - Brain fog [None]
  - Fatigue [None]
  - Primary stabbing headache [None]
  - Mood swings [None]
  - Disease susceptibility [None]
  - Contrast media reaction [None]

NARRATIVE: CASE EVENT DATE: 20231130
